FAERS Safety Report 15752706 (Version 1)
Quarter: 2018Q4

REPORT INFORMATION
  Report Type: Spontaneous
  Country: US (occurrence: US)
  Receive Date: 20181221
  Receipt Date: 20181221
  Transmission Date: 20190205
  Serious: Yes (Other)
  Sender: FDA-Public Use
  Company Number: US-GLAXOSMITHKLINE-US2018GSK229175

PATIENT
  Sex: Male

DRUGS (1)
  1. LAMICTAL [Suspect]
     Active Substance: LAMOTRIGINE
     Indication: SEIZURE
     Dosage: 250 MG, QD
     Route: 048
     Dates: start: 2006

REACTIONS (3)
  - Cardiac failure congestive [Unknown]
  - Ulcer haemorrhage [Unknown]
  - Meniere^s disease [Unknown]
